FAERS Safety Report 24714599 (Version 1)
Quarter: 2024Q4

REPORT INFORMATION
  Report Type: Spontaneous
  Country: JP (occurrence: JP)
  Receive Date: 20241209
  Receipt Date: 20241209
  Transmission Date: 20250115
  Serious: Yes (Death, Other)
  Sender: MERCK
  Company Number: JP-MSD-2412JPN001193J

PATIENT
  Age: 70 Year
  Sex: Male

DRUGS (1)
  1. KEYTRUDA [Suspect]
     Active Substance: PEMBROLIZUMAB
     Indication: Transitional cell carcinoma
     Dosage: UNK
     Route: 065
     Dates: start: 2020

REACTIONS (7)
  - Malignant neoplasm progression [Fatal]
  - Necrosis [Unknown]
  - Gallbladder oedema [Unknown]
  - Gastrointestinal oedema [Unknown]
  - Immune-mediated hepatic disorder [Unknown]
  - Lymphadenopathy [Unknown]
  - Serum ferritin increased [Unknown]

NARRATIVE: CASE EVENT DATE: 20210408
